FAERS Safety Report 18219949 (Version 4)
Quarter: 2021Q2

REPORT INFORMATION
  Report Type: Report from Study
  Country: FR (occurrence: FR)
  Receive Date: 20200901
  Receipt Date: 20210628
  Transmission Date: 20210717
  Serious: Yes (Hospitalization)
  Sender: FDA-Public Use
  Company Number: FR-BAXTER-2020BAX018044

PATIENT
  Age: 56 Year
  Sex: Male
  Weight: 79 kg

DRUGS (9)
  1. DEXAMETHASONE. [Suspect]
     Active Substance: DEXAMETHASONE
     Route: 048
     Dates: start: 20200817
  2. DOXIL [Suspect]
     Active Substance: DOXORUBICIN HYDROCHLORIDE
     Route: 065
     Dates: start: 20200817
  3. VELCADE [Suspect]
     Active Substance: BORTEZOMIB
     Route: 058
     Dates: start: 20200909
  4. DEXAMETHASONE. [Suspect]
     Active Substance: DEXAMETHASONE
     Route: 048
     Dates: start: 20200909
  5. DOXIL [Suspect]
     Active Substance: DOXORUBICIN HYDROCHLORIDE
     Route: 065
     Dates: start: 20200909
  6. VELCADE [Suspect]
     Active Substance: BORTEZOMIB
     Indication: PRODUCT USED FOR UNKNOWN INDICATION
     Dosage: DAY 1, 4, 8
     Route: 058
     Dates: start: 20200717, end: 20200720
  7. DEXAMETHASONE. [Suspect]
     Active Substance: DEXAMETHASONE
     Indication: PRODUCT USED FOR UNKNOWN INDICATION
     Dosage: DAY 1 TO 4
     Route: 048
     Dates: start: 20200717
  8. DOXIL [Suspect]
     Active Substance: DOXORUBICIN HYDROCHLORIDE
     Indication: PRODUCT USED FOR UNKNOWN INDICATION
     Dosage: DAY 1? 4
     Route: 065
     Dates: start: 20200717, end: 20200720
  9. VELCADE [Suspect]
     Active Substance: BORTEZOMIB
     Route: 058
     Dates: start: 20200817

REACTIONS (1)
  - Posterior reversible encephalopathy syndrome [Recovered/Resolved]

NARRATIVE: CASE EVENT DATE: 20200723
